FAERS Safety Report 23947141 (Version 1)
Quarter: 2024Q2

REPORT INFORMATION
  Report Type: Spontaneous
  Country: RU (occurrence: RU)
  Receive Date: 20240606
  Receipt Date: 20240606
  Transmission Date: 20240717
  Serious: Yes (Other)
  Sender: FDA-Public Use
  Company Number: RU-ELI_LILLY_AND_COMPANY-RU202406002442

PATIENT
  Age: 77 Year
  Sex: Female

DRUGS (3)
  1. RAMUCIRUMAB [Suspect]
     Active Substance: RAMUCIRUMAB
     Indication: Gastric cancer
     Dosage: UNK UNK, UNKNOWN
     Route: 065
     Dates: start: 202111, end: 20221026
  2. RAMUCIRUMAB [Suspect]
     Active Substance: RAMUCIRUMAB
     Dosage: UNK UNK, UNKNOWN
     Route: 065
     Dates: start: 20221116, end: 202308
  3. PACLITAXEL [Suspect]
     Active Substance: PACLITAXEL
     Indication: Gastric cancer
     Dosage: UNK UNK, UNKNOWN
     Route: 065
     Dates: start: 202111, end: 20221026

REACTIONS (2)
  - Polyneuropathy [Unknown]
  - Malignant neoplasm progression [Unknown]

NARRATIVE: CASE EVENT DATE: 20221115
